FAERS Safety Report 7340943-2 (Version None)
Quarter: 2011Q1

REPORT INFORMATION
  Report Type: 
  Country: None (occurrence: None)
  Receive Date: 20110309
  Receipt Date: 20100707
  Transmission Date: 20110831
  Serious: No
  Sender: FDA-Public Use
  Company Number: US-ABBOTT-10P-163-0656494-00

PATIENT
  Weight: 50.848 kg

DRUGS (3)
  1. PULMICORT [Concomitant]
     Indication: ASTHMA
     Dates: start: 20040101
  2. NASONEX [Concomitant]
     Indication: ASTHMA
     Dates: start: 20040101
  3. LUPRON DEPOT [Suspect]
     Indication: ENDOMETRIOSIS
     Dosage: 3 MONTH DOSE
     Dates: start: 20100514

REACTIONS (1)
  - HEADACHE [None]
